FAERS Safety Report 10695966 (Version 1)
Quarter: 2015Q1

REPORT INFORMATION
  Report Type: Spontaneous
  Country: US (occurrence: US)
  Receive Date: 20150107
  Receipt Date: 20150107
  Transmission Date: 20150721
  Serious: Yes (Hospitalization)
  Sender: FDA-Public Use
  Company Number: US-SHIRE-US201500034

PATIENT
  Sex: Male
  Weight: 12.15 kg

DRUGS (1)
  1. ELAPRASE [Suspect]
     Active Substance: IDURSULFASE
     Indication: MUCOPOLYSACCHARIDOSIS II
     Dosage: UNK  (5 - 6 MG VIALS RANGE), 1X/WEEK
     Route: 041

REACTIONS (2)
  - Viral infection [Unknown]
  - Haemolytic anaemia [Unknown]
